FAERS Safety Report 10039654 (Version 1)
Quarter: 2014Q1

REPORT INFORMATION
  Report Type: Spontaneous
  Country: AT (occurrence: AT)
  Receive Date: 20140326
  Receipt Date: 20140326
  Transmission Date: 20141002
  Serious: Yes (Death)
  Sender: FDA-Public Use
  Company Number: AT-JNJFOC-20140313648

PATIENT
  Age: 52 Year
  Sex: Male
  Weight: 85 kg

DRUGS (2)
  1. SIMPONI [Suspect]
     Indication: POLYARTHRITIS
     Route: 058
     Dates: start: 201204
  2. SIMPONI [Suspect]
     Indication: POLYARTHRITIS
     Route: 058
     Dates: start: 201205

REACTIONS (1)
  - Staphylococcal sepsis [Fatal]
